FAERS Safety Report 17301816 (Version 1)
Quarter: 2020Q1

REPORT INFORMATION
  Report Type: Report from Study
  Country: None (occurrence: US)
  Receive Date: 20200122
  Receipt Date: 20200122
  Transmission Date: 20200409
  Serious: Yes (Other)
  Sender: FDA-Public Use
  Company Number: US-ABBVIE-20K-044-3237749-00

PATIENT

DRUGS (2)
  1. IMBRUVICA [Suspect]
     Active Substance: IBRUTINIB
     Indication: CHRONIC LYMPHOCYTIC LEUKAEMIA
     Dosage: TWO (28-DAYS) CYCLES
     Route: 048
  2. VENETOCLAX. [Suspect]
     Active Substance: VENETOCLAX
     Indication: CHRONIC LYMPHOCYTIC LEUKAEMIA
     Dosage: FURTHER 12 CYCLES; TOTAL 15 CYCLES.
     Route: 065

REACTIONS (4)
  - Atrial fibrillation [Unknown]
  - Toxicity to various agents [Unknown]
  - Drug intolerance [Unknown]
  - Haemorrhage [Unknown]
